FAERS Safety Report 6309326-8 (Version None)
Quarter: 2009Q3

REPORT INFORMATION
  Report Type: 
  Country: None (occurrence: None)
  Receive Date: 20090814
  Receipt Date: 20090805
  Transmission Date: 20100115
  Serious: Yes (Other)
  Sender: FDA-Public Use
  Company Number: US-BAYER-200929176NA

PATIENT
  Sex: Female

DRUGS (2)
  1. MIRENA [Suspect]
     Indication: DRUG USE FOR UNKNOWN INDICATION
     Route: 015
     Dates: start: 20090702, end: 20090702
  2. MIRENA [Suspect]
     Dosage: PLACED AFTER THE 2ND ASPIRATION OF THE UTERUS
     Route: 015
     Dates: start: 20090702

REACTIONS (1)
  - POST ABORTION COMPLICATION [None]
